FAERS Safety Report 21334532 (Version 3)
Quarter: 2022Q4

REPORT INFORMATION
  Report Type: Spontaneous
  Country: US (occurrence: US)
  Receive Date: 20220914
  Receipt Date: 20221109
  Transmission Date: 20230113
  Serious: No
  Sender: FDA-Public Use
  Company Number: US-AIMMUNE THERAPEUTICS, INC.-2022AIMT02318

PATIENT

DRUGS (7)
  1. PALFORZIA [Suspect]
     Active Substance: PEANUT
     Indication: Food allergy
     Dosage: IDE (0.5-6MG), ONCE
     Route: 048
     Dates: start: 20220728, end: 20220728
  2. PALFORZIA [Suspect]
     Active Substance: PEANUT
     Dosage: 6 MG, 1X/DAY
     Route: 048
     Dates: start: 20220811, end: 20220825
  3. PALFORZIA [Suspect]
     Active Substance: PEANUT
     Dosage: 6 MG, ONCE, LAST DOSE PRIOR EVENT
     Route: 048
     Dates: start: 20220825, end: 20220825
  4. PALFORZIA [Suspect]
     Active Substance: PEANUT
     Dosage: 3 MG, 1X/DAY, DOSE REDUCED
     Route: 048
     Dates: start: 20220826, end: 20221005
  5. PALFORZIA [Suspect]
     Active Substance: PEANUT
     Dosage: 6 MG, 1X/DAY
     Route: 048
     Dates: start: 20221006, end: 20221030
  6. PALFORZIA [Suspect]
     Active Substance: PEANUT
     Dosage: 6 MG, ONCE, RECURRENCE OF THE EVENTS
     Route: 048
     Dates: start: 20221030, end: 20221030
  7. PALFORZIA [Suspect]
     Active Substance: PEANUT
     Dosage: 3 MG, 1X/DAY, DOSE REDUCED
     Route: 048
     Dates: start: 20221031

REACTIONS (3)
  - Diarrhoea [Unknown]
  - Nausea [Unknown]
  - Vomiting [Unknown]

NARRATIVE: CASE EVENT DATE: 20220825
